FAERS Safety Report 14156594 (Version 2)
Quarter: 2017Q4

REPORT INFORMATION
  Report Type: Spontaneous
  Country: CA (occurrence: CA)
  Receive Date: 20171103
  Receipt Date: 20171127
  Transmission Date: 20180321
  Serious: Yes (Other)
  Sender: FDA-Public Use
  Company Number: CA-TEVA-820451ACC

PATIENT
  Sex: Male

DRUGS (8)
  1. PREDNISONE. [Suspect]
     Active Substance: PREDNISONE
     Indication: COLITIS ULCERATIVE
     Dosage: 50MG UNKNOWN FREQUENCY AND TAPERED DOSE IN 2009
  2. MESALAZINE [Suspect]
     Active Substance: MESALAMINE
     Indication: COLITIS ULCERATIVE
     Dates: start: 2017, end: 201709
  3. CORTIMENT (HYDROCORTISONE ACETATE) [Suspect]
     Active Substance: HYDROCORTISONE ACETATE
     Indication: COLITIS ULCERATIVE
     Dosage: 1 TABLET ONCE DAILY. ON 8 WEEKS COURSE OVER THE LAST 3 MONTHS
     Route: 048
     Dates: start: 201707
  4. ASACOL [Suspect]
     Active Substance: MESALAMINE
     Indication: COLITIS ULCERATIVE
     Dosage: 4.8 GRAM DAILY; 3 TABLETS TWICE DAILY (4.8 G/DAY)
     Dates: start: 201610
  5. ENTYVIO [Suspect]
     Active Substance: VEDOLIZUMAB
     Indication: COLITIS ULCERATIVE
     Dosage: STOPPED 2 MONTHS AGO
     Dates: end: 2017
  6. CORTIFOAM [Suspect]
     Active Substance: HYDROCORTISONE ACETATE
     Indication: COLITIS ULCERATIVE
     Dosage: ENEMAS
  7. INFLECTRA [Suspect]
     Active Substance: INFLIXIMAB-DYYB
     Indication: COLITIS ULCERATIVE
     Dosage: INTRAVENOUS EVERY 0, 2, 6 WEEKS, THEN EVERY 8 WEEKS
     Route: 042
  8. WARFARIN [Suspect]
     Active Substance: WARFARIN
     Indication: DEEP VEIN THROMBOSIS
     Dosage: LIFELONG WARFARIN

REACTIONS (6)
  - Condition aggravated [Unknown]
  - Impaired quality of life [Unknown]
  - Drug ineffective [Unknown]
  - Bronchiectasis [Unknown]
  - Frequent bowel movements [Unknown]
  - Weight decreased [Unknown]
